FAERS Safety Report 7252152-6 (Version None)
Quarter: 2011Q1

REPORT INFORMATION
  Report Type: 
  Country: None (occurrence: None)
  Receive Date: 20110128
  Receipt Date: 20100405
  Transmission Date: 20110831
  Serious: No
  Sender: FDA-Public Use
  Company Number: US-ABBOTT-10P-163-0636267-00

PATIENT
  Sex: Male
  Weight: 113.5 kg

DRUGS (14)
  1. LISINOPRIL [Concomitant]
     Indication: PRODUCT USED FOR UNKNOWN INDICATION
  2. HUMIRA [Suspect]
  3. COUMADIN [Concomitant]
     Indication: ATRIAL FIBRILLATION
  4. DIGOXIN [Concomitant]
     Indication: ATRIAL FLUTTER
  5. PENTASA [Concomitant]
     Indication: PRODUCT USED FOR UNKNOWN INDICATION
  6. M.V.I. [Concomitant]
     Indication: PRODUCT USED FOR UNKNOWN INDICATION
  7. HUMIRA [Suspect]
     Indication: CROHN'S DISEASE
     Dosage: 4 PENS THEN 2 AND THEN 1 LOADING DOSE
     Dates: start: 20100224
  8. DIGOXIN [Concomitant]
     Indication: ATRIAL FIBRILLATION
  9. VIT C [Concomitant]
     Indication: PRODUCT USED FOR UNKNOWN INDICATION
  10. PREDNISONE [Concomitant]
     Indication: PRODUCT USED FOR UNKNOWN INDICATION
     Dosage: DECREASING DOSE
  11. DILTIAZEM [Concomitant]
     Indication: ATRIAL FIBRILLATION
  12. MULTIPLE B VIT [Concomitant]
     Indication: PRODUCT USED FOR UNKNOWN INDICATION
  13. CAL MAG [Concomitant]
     Indication: PRODUCT USED FOR UNKNOWN INDICATION
  14. COQ10 [Concomitant]
     Indication: PRODUCT USED FOR UNKNOWN INDICATION

REACTIONS (2)
  - SENSATION OF FOREIGN BODY [None]
  - DYSPHAGIA [None]
